FAERS Safety Report 7103993-7 (Version None)
Quarter: 2010Q4

REPORT INFORMATION
  Report Type: 
  Country: None (occurrence: None)
  Receive Date: 20101115
  Receipt Date: 20100511
  Transmission Date: 20110411
  Serious: No
  Sender: FDA-Public Use
  Company Number: US-ALLERGAN-1006180US

PATIENT
  Sex: Female

DRUGS (7)
  1. BOTOX COSMETIC [Suspect]
     Indication: SKIN WRINKLING
     Dosage: 24 UNITS, SINGLE
     Route: 030
     Dates: start: 20100503, end: 20100503
  2. LIPITOR [Concomitant]
     Indication: BLOOD CHOLESTEROL INCREASED
  3. MIACALCIN [Concomitant]
     Indication: OSTEOPOROSIS
  4. NAPROXEN [Concomitant]
     Dosage: 500 MG, BID
  5. MULTI-VITAMIN [Concomitant]
  6. FLAXSEED OIL [Concomitant]
  7. VITAMIN B-12 [Concomitant]

REACTIONS (1)
  - EYELID PTOSIS [None]
